FAERS Safety Report 14220387 (Version 1)
Quarter: 2017Q4

REPORT INFORMATION
  Report Type: Spontaneous
  Country: NL (occurrence: NL)
  Receive Date: 20171124
  Receipt Date: 20171124
  Transmission Date: 20180321
  Serious: Yes (Death)
  Sender: FDA-Public Use
  Company Number: PHHY2017NL172325

PATIENT

DRUGS (5)
  1. RITUXIMAB. [Concomitant]
     Active Substance: RITUXIMAB
     Indication: NEPHROTIC SYNDROME
  2. RITUXIMAB. [Concomitant]
     Active Substance: RITUXIMAB
     Indication: GLOMERULONEPHRITIS MEMBRANOUS
     Dosage: 375 MG/M2, FOUR WEEKLY DOSES
     Route: 042
  3. METHYLPREDNISOLONE. [Suspect]
     Active Substance: METHYLPREDNISOLONE
     Indication: GLOMERULONEPHRITIS MEMBRANOUS
     Dosage: 1 G, DAYS 1?3, 61?63, AND 121?123
     Route: 041
  4. CYCLOPHOSPHAMIDE. [Suspect]
     Active Substance: CYCLOPHOSPHAMIDE
     Indication: GLOMERULONEPHRITIS MEMBRANOUS
     Dosage: 1.5 MG/KG, QD FOR 6-12 MONTHS
     Route: 048
  5. PREDNISONE. [Suspect]
     Active Substance: PREDNISONE
     Indication: GLOMERULONEPHRITIS MEMBRANOUS
     Dosage: 0.5 MG/KG, QOD FOR 5 MONTHS BEFORE TAPERING
     Route: 048

REACTIONS (1)
  - Lung neoplasm malignant [Fatal]
